FAERS Safety Report 5989471-7 (Version None)
Quarter: 2008Q4

REPORT INFORMATION
  Report Type: 
  Country: None (occurrence: None)
  Receive Date: 20081205
  Receipt Date: 20081120
  Transmission Date: 20090506
  Serious: Yes (Other)
  Sender: FDA-Public Use
  Company Number: 2008SP023804

PATIENT
  Age: 6 Month
  Sex: Male
  Weight: 32 kg

DRUGS (5)
  1. AERIUS (DESLORATADINE) (DESLORATADINE) [Suspect]
     Indication: NASOPHARYNGITIS
     Dosage: 5 MG;QD;PO
     Route: 048
     Dates: start: 20080920, end: 20080922
  2. EURESPAL (FENSPIRIDE) (NO PREF. NAME) [Suspect]
     Indication: NASOPHARYNGITIS
     Dosage: 10 MG;TID;PO
     Route: 048
     Dates: start: 20080920, end: 20080922
  3. SINGULAIR [Concomitant]
  4. FLIXOTIDE DYSK 100 (FLUTICASONE PROPIONATE) [Concomitant]
  5. ISOPRINOSINE [Concomitant]

REACTIONS (3)
  - BALANCE DISORDER [None]
  - NAUSEA [None]
  - VISUAL IMPAIRMENT [None]
